FAERS Safety Report 24204264 (Version 1)
Quarter: 2024Q3

REPORT INFORMATION
  Report Type: Spontaneous
  Country: FR (occurrence: FR)
  Receive Date: 20240813
  Receipt Date: 20240813
  Transmission Date: 20241016
  Serious: Yes (Disabling)
  Sender: RECORDATI
  Company Number: None

PATIENT

DRUGS (9)
  1. DACTINOMYCIN [Suspect]
     Active Substance: DACTINOMYCIN
     Indication: Pleuropulmonary blastoma
     Dosage: 9 CURES AU TOTAL (9 TREATMENTS IN TOTAL)
     Route: 042
     Dates: start: 20210308, end: 20211015
  2. DACTINOMYCIN [Suspect]
     Active Substance: DACTINOMYCIN
     Indication: Off label use
  3. IRINOTECAN [Suspect]
     Active Substance: IRINOTECAN
     Indication: Pleuropulmonary blastoma
     Dosage: 6 CURES AU TOTAL (6 TREATMENTS IN TOTAL)
     Route: 042
     Dates: start: 20230121, end: 20230724
  4. TEMOZOLOMIDE [Suspect]
     Active Substance: TEMOZOLOMIDE
     Indication: Pleuropulmonary blastoma
     Dosage: 6 CURES AU TOTAL (6 TREATMENTS IN TOTAL)
     Route: 042
     Dates: start: 20230121, end: 20230724
  5. IFOSFAMIDE [Suspect]
     Active Substance: IFOSFAMIDE
     Indication: Pleuropulmonary blastoma
     Dosage: 9 CURES AU TOTAL (9 TREATMENTS IN TOTAL)
     Route: 042
     Dates: start: 20210308, end: 20211015
  6. ETOPOSIDE [Suspect]
     Active Substance: ETOPOSIDE
     Indication: Pleuropulmonary blastoma
     Dosage: 1 DOSAGE FORM, QD
     Route: 042
     Dates: start: 202209, end: 202209
  7. CARBOPLATIN [Suspect]
     Active Substance: CARBOPLATIN
     Indication: Pleuropulmonary blastoma
     Dosage: 1 DOSAGE FORM, QD
     Route: 042
     Dates: start: 202209, end: 202209
  8. VINCRISTINE [Suspect]
     Active Substance: VINCRISTINE
     Indication: Pleuropulmonary blastoma
     Dosage: 9 CURES AU TOTAL (9 TREATMENTS IN TOTAL)
     Route: 042
     Dates: start: 20210308, end: 20211015
  9. VINCRISTINE [Suspect]
     Active Substance: VINCRISTINE
     Dosage: 6 CURES AU TOTAL (6 TREATMENTS IN TOTAL)
     Route: 042
     Dates: start: 20230121, end: 20230724

REACTIONS (4)
  - Memory impairment [Not Recovered/Not Resolved]
  - Cognitive disorder [Not Recovered/Not Resolved]
  - Disturbance in attention [Not Recovered/Not Resolved]
  - Off label use [Recovered/Resolved]

NARRATIVE: CASE EVENT DATE: 20210308
